FAERS Safety Report 19230463 (Version 2)
Quarter: 2021Q2

REPORT INFORMATION
  Report Type: Spontaneous
  Country: GB (occurrence: GB)
  Receive Date: 20210507
  Receipt Date: 20210527
  Transmission Date: 20210717
  Serious: Yes (Life-Threatening, Hospitalization, Other)
  Sender: FDA-Public Use
  Company Number: GB-SUN PHARMACEUTICAL INDUSTRIES LTD-2021RR-295382

PATIENT
  Age: 67 Year
  Sex: Female
  Weight: 78.01 kg

DRUGS (2)
  1. OXYCODONE HYDROCHLORIDE. [Suspect]
     Active Substance: OXYCODONE HYDROCHLORIDE
     Indication: BACK PAIN
     Dosage: 20MG
     Route: 048
     Dates: start: 2015
  2. PREGABALIN. [Suspect]
     Active Substance: PREGABALIN
     Indication: BACK PAIN
     Dosage: 150MG
     Route: 048
     Dates: start: 2018

REACTIONS (5)
  - Overdose [Recovered/Resolved]
  - Constipation [Unknown]
  - Medication error [Unknown]
  - Blood pressure decreased [Unknown]
  - Hallucination [Unknown]

NARRATIVE: CASE EVENT DATE: 20210417
